FAERS Safety Report 23154946 (Version 11)
Quarter: 2025Q2

REPORT INFORMATION
  Report Type: Report from Study
  Country: US (occurrence: US)
  Receive Date: 20231107
  Receipt Date: 20250424
  Transmission Date: 20250717
  Serious: Yes (Hospitalization, Other)
  Sender: TAKEDA
  Company Number: US-SHIRE-US201729808

PATIENT
  Age: 31 Year
  Sex: Male
  Weight: 49 kg

DRUGS (11)
  1. IDURSULFASE [Suspect]
     Active Substance: IDURSULFASE
     Indication: Mucopolysaccharidosis II
     Dosage: 6 DOSAGE FORM, 1/WEEK
     Dates: start: 20080919
  2. IDURSULFASE [Suspect]
     Active Substance: IDURSULFASE
  3. IDURSULFASE [Suspect]
     Active Substance: IDURSULFASE
     Dosage: 30 INTERNATIONAL UNIT, 1/WEEK
  4. IDURSULFASE [Suspect]
     Active Substance: IDURSULFASE
  5. IDURSULFASE [Suspect]
     Active Substance: IDURSULFASE
     Dosage: UNK UNK, 1/WEEK
  6. IDURSULFASE [Suspect]
     Active Substance: IDURSULFASE
     Dosage: 30 MILLIGRAM, 1/WEEK
  7. IDURSULFASE [Suspect]
     Active Substance: IDURSULFASE
     Dosage: UNK UNK, 1/WEEK
  8. IDURSULFASE [Suspect]
     Active Substance: IDURSULFASE
     Dosage: 5 DOSAGE FORM, 1/WEEK
  9. IDURSULFASE [Suspect]
     Active Substance: IDURSULFASE
     Dosage: UNK UNK, 1/WEEK
  10. TYLENOL [Concomitant]
     Active Substance: ACETAMINOPHEN
  11. DIPHENHYDRAMINE [Concomitant]
     Active Substance: DIPHENHYDRAMINE
     Indication: Premedication

REACTIONS (26)
  - COVID-19 pneumonia [Unknown]
  - Chronic obstructive pulmonary disease [Unknown]
  - Dyspnoea [Unknown]
  - Croup infectious [Unknown]
  - Candida infection [Unknown]
  - Parainfluenzae virus infection [Unknown]
  - Sinusitis [Not Recovered/Not Resolved]
  - Illness [Unknown]
  - Hypersomnia [Unknown]
  - Insurance issue [Unknown]
  - COVID-19 [Recovering/Resolving]
  - Obstructive airways disorder [Unknown]
  - Product use issue [Unknown]
  - Feeling abnormal [Unknown]
  - Respiratory disorder [Unknown]
  - Product dose omission issue [Not Recovered/Not Resolved]
  - Walking aid user [Unknown]
  - Asthenia [Unknown]
  - Weight decreased [Unknown]
  - Poor venous access [Unknown]
  - Dehydration [Unknown]
  - Fatigue [Unknown]
  - Nausea [Not Recovered/Not Resolved]
  - Headache [Unknown]
  - Nasopharyngitis [Recovering/Resolving]
  - Gait disturbance [Unknown]

NARRATIVE: CASE EVENT DATE: 20171106
